FAERS Safety Report 4997090-4 (Version None)
Quarter: 2006Q2

REPORT INFORMATION
  Report Type: 
  Country: None (occurrence: None)
  Receive Date: 20060505
  Receipt Date: 20060421
  Transmission Date: 20061013
  Serious: Yes (Other)
  Sender: FDA-Public Use
  Company Number: FABR-11461

PATIENT
  Age: 47 Year
  Sex: Female
  Weight: 51.7101 kg

DRUGS (2)
  1. FABRAZYME [Suspect]
     Indication: FABRY'S DISEASE
     Dosage: 56 MG Q2WKS IV
     Route: 042
     Dates: start: 20031001
  2. TYLENOL (CAPLET) [Concomitant]

REACTIONS (6)
  - CHILLS [None]
  - FATIGUE [None]
  - HYPERHIDROSIS [None]
  - PAIN [None]
  - PYREXIA [None]
  - SOMNOLENCE [None]
